FAERS Safety Report 10290128 (Version 1)
Quarter: 2014Q3

REPORT INFORMATION
  Report Type: Spontaneous
  Country: US (occurrence: US)
  Receive Date: 20140710
  Receipt Date: 20140710
  Transmission Date: 20150326
  Serious: No
  Sender: FDA-Public Use
  Company Number: US-PFIZER INC-2014188428

PATIENT
  Age: 68 Year
  Sex: Male
  Weight: 81.63 kg

DRUGS (2)
  1. ADVIL [Suspect]
     Active Substance: IBUPROFEN
     Indication: PAIN
     Dosage: 800 MG, 3X/DAY
     Dates: start: 201401
  2. ADVIL [Suspect]
     Active Substance: IBUPROFEN
     Indication: OSTEOARTHRITIS

REACTIONS (2)
  - Overdose [Unknown]
  - Alopecia [Unknown]

NARRATIVE: CASE EVENT DATE: 2014
